FAERS Safety Report 5814324-4 (Version None)
Quarter: 2008Q3

REPORT INFORMATION
  Report Type: 
  Country: None (occurrence: None)
  Receive Date: 20080715
  Receipt Date: 20080630
  Transmission Date: 20090109
  Serious: Yes (Congenital Anomaly)
  Sender: FDA-Public Use
  Company Number: 2008S1011999

PATIENT
  Age: 38 Year
  Sex: Female

DRUGS (4)
  1. ZIDOVUDINE [Suspect]
     Dosage: 100 MG; DAILY; ORAL
     Route: 048
     Dates: start: 20070901, end: 20080301
  2. NORVIR [Suspect]
     Dosage: 100 MG; DAILY; ORAL
     Route: 048
     Dates: start: 20080401
  3. REYATAZ [Suspect]
     Dosage: 300 MG; DAILY; ORAL
     Route: 048
     Dates: start: 20070901
  4. TRUVADA [Suspect]
     Dosage: 1 DF; DAILY; ORAL
     Route: 048
     Dates: start: 20070901

REACTIONS (8)
  - ABORTION INDUCED [None]
  - DRUG DISPENSING ERROR [None]
  - DRUG EXPOSURE DURING PREGNANCY [None]
  - FOETAL CARDIAC DISORDER [None]
  - HYDROCEPHALUS [None]
  - MATERNAL DRUGS AFFECTING FOETUS [None]
  - PREGNANCY [None]
  - WRONG DRUG ADMINISTERED [None]
